FAERS Safety Report 24788223 (Version 2)
Quarter: 2025Q2

REPORT INFORMATION
  Report Type: Spontaneous
  Country: US (occurrence: US)
  Receive Date: 20241230
  Receipt Date: 20250612
  Transmission Date: 20250716
  Serious: No
  Sender: SANOFI AVENTIS
  Company Number: US-SA-2024SA383599

PATIENT
  Age: 40 Year
  Sex: Male

DRUGS (1)
  1. DUPIXENT [Suspect]
     Active Substance: DUPILUMAB
     Indication: Nasal polyps
     Dosage: 300 MG, QOW
     Route: 058

REACTIONS (5)
  - Gingival swelling [Recovered/Resolved]
  - Gingivitis [Recovered/Resolved]
  - Rhinalgia [Recovered/Resolved]
  - Rhinitis [Recovered/Resolved]
  - Drug effect less than expected [Unknown]

NARRATIVE: CASE EVENT DATE: 20250520
